FAERS Safety Report 4539170-3 (Version None)
Quarter: 2004Q4

REPORT INFORMATION
  Report Type: 
  Country: None (occurrence: None)
  Receive Date: 20041227
  Receipt Date: 20041227
  Transmission Date: 20050328
  Serious: Yes (Other)
  Sender: FDA-Public Use
  Company Number: None

PATIENT
  Age: 67 Year
  Sex: Female
  Weight: 76.6579 kg

DRUGS (2)
  1. PERCOCET [Suspect]
     Indication: BACK PAIN
  2. PERCOCET [Suspect]
     Indication: ROTATOR CUFF SYNDROME

REACTIONS (2)
  - ABDOMINAL PAIN [None]
  - PHARMACEUTICAL PRODUCT COMPLAINT [None]
